FAERS Safety Report 8371333 (Version 3)
Quarter: 2013Q2

REPORT INFORMATION
  Report Type: Report from Study
  Country: US (occurrence: US)
  Receive Date: 20120129
  Receipt Date: 20130605
  Transmission Date: 20140414
  Serious: Yes (Hospitalization, Other)
  Sender: FDA-Public Use
  Company Number: US-ABBOTT-11P-163-0881983-00

PATIENT
  Age: 37 Year
  Sex: Female
  Weight: 67.65 kg

DRUGS (11)
  1. HUMIRA 40 MG/0.8 ML PEN [Suspect]
     Indication: ANKYLOSING SPONDYLITIS
     Route: 058
     Dates: start: 20110219, end: 201206
  2. HUMIRA 40 MG/0.8 ML PEN [Suspect]
     Route: 058
     Dates: start: 201206, end: 201206
  3. HUMIRA 40 MG/0.8 ML PEN [Suspect]
     Route: 058
     Dates: start: 201207
  4. IODINE CONTRAST [Suspect]
     Indication: PRODUCT USED FOR UNKNOWN INDICATION
     Dates: start: 201207
  5. TRAMADOL ER [Concomitant]
     Indication: PAIN
     Route: 048
  6. NORCO [Concomitant]
     Indication: PAIN
     Dosage: 10/325MG
  7. NORCO [Concomitant]
     Indication: INSOMNIA
  8. TOPAMAX [Concomitant]
     Indication: HEADACHE
     Route: 048
  9. FLEXERIL [Concomitant]
     Indication: MUSCLE SPASMS
     Dosage: AT BEDTIME
     Route: 048
  10. ALBUTEROL [Concomitant]
     Indication: ASTHMA
  11. CALCIUM VIT D [Concomitant]
     Indication: PRODUCT USED FOR UNKNOWN INDICATION
     Dosage: DAILY
     Route: 048

REACTIONS (20)
  - Heart rate increased [Not Recovered/Not Resolved]
  - Pain [Unknown]
  - Injection site mass [Unknown]
  - Anaemia [Unknown]
  - Dyspnoea [Not Recovered/Not Resolved]
  - Pain [Recovering/Resolving]
  - Ankylosing spondylitis [Recovering/Resolving]
  - Drug ineffective [Recovered/Resolved]
  - Lipoma [Not Recovered/Not Resolved]
  - Cardio-respiratory arrest [Recovered/Resolved]
  - Contrast media allergy [Recovered/Resolved]
  - Hypotension [Recovered/Resolved]
  - Benign breast neoplasm [Recovered/Resolved]
  - Chest pain [Not Recovered/Not Resolved]
  - Blood potassium decreased [Unknown]
  - Serum ferritin decreased [Unknown]
  - Ankylosing spondylitis [Not Recovered/Not Resolved]
  - Blood calcium decreased [Unknown]
  - Sinus tachycardia [Not Recovered/Not Resolved]
  - Haemorrhage [Unknown]
